FAERS Safety Report 23589391 (Version 1)
Quarter: 2024Q1

REPORT INFORMATION
  Report Type: Spontaneous
  Country: SE (occurrence: SE)
  Receive Date: 20240304
  Receipt Date: 20240304
  Transmission Date: 20240410
  Serious: Yes (Death, Other)
  Sender: FDA-Public Use
  Company Number: None

PATIENT
  Age: 65 Year
  Sex: Male
  Weight: 68 kg

DRUGS (4)
  1. YERVOY [Suspect]
     Active Substance: IPILIMUMAB
     Indication: Metastases to lung
     Dates: start: 20231027, end: 20231208
  2. YERVOY [Suspect]
     Active Substance: IPILIMUMAB
     Indication: Metastases to bone
  3. YERVOY [Suspect]
     Active Substance: IPILIMUMAB
     Indication: Clear cell renal cell carcinoma
  4. OPDIVO [Suspect]
     Active Substance: NIVOLUMAB
     Indication: Product used for unknown indication
     Route: 042
     Dates: start: 20231027, end: 20231208

REACTIONS (7)
  - Left ventricular failure [Fatal]
  - Arrhythmia supraventricular [Fatal]
  - Condition aggravated [Fatal]
  - Atrioventricular block [Fatal]
  - Sepsis [Fatal]
  - Myocarditis [Fatal]
  - Cardiac failure [Fatal]

NARRATIVE: CASE EVENT DATE: 20231201
